FAERS Safety Report 9054524 (Version 2)
Quarter: 2013Q2

REPORT INFORMATION
  Report Type: Spontaneous
  Country: US (occurrence: US)
  Receive Date: 20130208
  Receipt Date: 20130523
  Transmission Date: 20140414
  Serious: Yes (Hospitalization)
  Sender: FDA-Public Use
  Company Number: US-B.I. PHARMACEUTICALS,INC./RIDGEFIELD-2013-BI-03356BP

PATIENT
  Age: 68 Year
  Sex: Male
  Weight: 104.33 kg

DRUGS (10)
  1. PRADAXA [Suspect]
     Indication: ANTICOAGULANT THERAPY
     Dosage: 300 MG
     Dates: start: 20120331, end: 20120820
  2. PRADAXA [Suspect]
     Indication: ATRIAL FIBRILLATION
  3. AMLODIPINE [Concomitant]
  4. LISINOPRIL [Concomitant]
     Dosage: 10 MG
  5. SPIRONOLACTONE [Concomitant]
     Dosage: 25 MG
  6. LEVOTHYROXINE [Concomitant]
     Dosage: 25 MCG
  7. METOPROLOL [Concomitant]
     Dosage: 75 MG
  8. SIMVASTATIN [Concomitant]
     Dosage: 20 MG
  9. AMIODARONE [Concomitant]
     Dosage: 200 MG
  10. LASIX [Concomitant]
     Dosage: 40 MG

REACTIONS (2)
  - Gastrointestinal haemorrhage [Unknown]
  - Haemoglobin decreased [Unknown]
